FAERS Safety Report 26107905 (Version 1)
Quarter: 2025Q4

REPORT INFORMATION
  Report Type: Spontaneous
  Country: US (occurrence: None)
  Receive Date: 20251201
  Receipt Date: 20251201
  Transmission Date: 20260118
  Serious: Yes (Other)
  Sender: FDA-CTU
  Company Number: None

PATIENT
  Age: 59 Year
  Sex: Female

DRUGS (1)
  1. KISQALI [Suspect]
     Active Substance: RIBOCICLIB SUCCINATE
     Dosage: OTHER FREQUENCY : ONCE DAILY FOR 21 DAYS, THEN 7 DAYS OFF;?

REACTIONS (1)
  - Electrocardiogram QT interval abnormal [None]
